FAERS Safety Report 5792009-0 (Version None)
Quarter: 2008Q2

REPORT INFORMATION
  Report Type: 
  Country: None (occurrence: None)
  Receive Date: 20080626
  Receipt Date: 20080619
  Transmission Date: 20081010
  Serious: Yes (Death)
  Sender: FDA-Public Use
  Company Number: JP-ABBOTT-08P-087-0447118-00

PATIENT
  Age: 71 Year
  Sex: Male
  Weight: 70 kg

DRUGS (6)
  1. LEUPLIN SR INJECTION KIT 11.25 MG [Suspect]
     Indication: PROSTATE CANCER STAGE IV
     Route: 058
     Dates: start: 20061116, end: 20070208
  2. LEUPLIN SR INJECTION KIT 11.25 MG [Suspect]
     Dates: start: 20030417
  3. ESTRAMUSTINE PHOSPHATE SODIUM [Concomitant]
     Indication: PROSTATE CANCER STAGE IV
     Route: 048
     Dates: start: 20060920, end: 20070420
  4. DOCETAXEL [Concomitant]
     Indication: PROSTATE CANCER STAGE IV
     Route: 042
     Dates: start: 20060921, end: 20070419
  5. DOCETAXEL [Concomitant]
     Route: 042
     Dates: start: 20060829
  6. DEXAMETHASONE [Concomitant]
     Indication: PROSTATE CANCER STAGE IV
     Route: 042
     Dates: start: 20060921, end: 20070419

REACTIONS (2)
  - METASTASES TO BONE [None]
  - PROSTATE CANCER [None]
